FAERS Safety Report 9809244 (Version 5)
Quarter: 2015Q1

REPORT INFORMATION
  Report Type: Report from Study
  Country: DE (occurrence: DE)
  Receive Date: 20140110
  Receipt Date: 20150303
  Transmission Date: 20150721
  Serious: Yes (Death, Other)
  Sender: FDA-Public Use
  Company Number: DE-ABBVIE-13P-062-1175988-00

PATIENT
  Age: 71 Year
  Sex: Male
  Weight: 78 kg

DRUGS (1)
  1. LEUPRORELIN (LUPRORELIN ACETATE) INJECTION [Suspect]
     Active Substance: LEUPROLIDE ACETATE
     Indication: PROSTATE CANCER
     Route: 065
     Dates: start: 20120203, end: 20130117

REACTIONS (4)
  - Prostatic specific antigen increased [Unknown]
  - Prostate cancer metastatic [Fatal]
  - Metastases to bone [Unknown]
  - Cardiac arrest [Fatal]
